FAERS Safety Report 4477402-0 (Version None)
Quarter: 2004Q4

REPORT INFORMATION
  Report Type: 
  Country: None (occurrence: None)
  Receive Date: 20041013
  Receipt Date: 20040929
  Transmission Date: 20050328
  Serious: Yes (Life-Threatening, Other)
  Sender: FDA-Public Use
  Company Number: 200410414BYL

PATIENT
  Age: 73 Year
  Sex: Male
  Weight: 58 kg

DRUGS (4)
  1. CIPROFLOXACIN HCL [Suspect]
     Indication: UPPER RESPIRATORY TRACT INFLAMMATION
     Dosage: 200 MG, TID, ORAL
     Route: 048
     Dates: start: 20040802, end: 20040803
  2. PL (COUGH AND COLD PREPARATION) [Suspect]
     Indication: UPPER RESPIRATORY TRACT INFLAMMATION
     Dosage: TID, ORAL
     Route: 048
     Dates: start: 20040802, end: 20040803
  3. NICOLDA (TRANEXAMIC ACID) [Suspect]
     Indication: UPPER RESPIRATORY TRACT INFLAMMATION
     Dosage: 250 MG, TID, ORAL
     Route: 048
     Dates: start: 20040802, end: 20040803
  4. CEFAZOLIN [Concomitant]

REACTIONS (10)
  - ACUTE RESPIRATORY DISTRESS SYNDROME [None]
  - HAEMODIALYSIS [None]
  - HEPATIC FAILURE [None]
  - HEPATITIS ACUTE [None]
  - HYPOCALCAEMIA [None]
  - HYPOGLYCAEMIA [None]
  - LUNG INJURY [None]
  - PYREXIA [None]
  - RENAL FAILURE ACUTE [None]
  - RHABDOMYOLYSIS [None]
